FAERS Safety Report 4823805-1 (Version None)
Quarter: 2005Q4

REPORT INFORMATION
  Report Type: 
  Country: None (occurrence: None)
  Receive Date: 20051107
  Receipt Date: 20051027
  Transmission Date: 20060501
  Serious: Yes (Disabling)
  Sender: FDA-Public Use
  Company Number: 2005121313

PATIENT
  Age: 87 Year
  Sex: Female

DRUGS (10)
  1. LIPITOR [Suspect]
     Indication: ILL-DEFINED DISORDER
     Dates: start: 20051029
  2. NORVASC [Concomitant]
  3. CELEBREX [Concomitant]
  4. HYDROCHLOROTHIAZIDE [Concomitant]
  5. KLOR-CON [Concomitant]
  6. AMBIEN [Concomitant]
  7. SKELAXIN [Concomitant]
  8. ASPIRIN [Concomitant]
  9. ATIVAN [Concomitant]
  10. FOSAMAX [Concomitant]

REACTIONS (27)
  - ABDOMINAL DISTENSION [None]
  - AMOEBIASIS [None]
  - ANXIETY [None]
  - AORTIC VALVE INCOMPETENCE [None]
  - BURSITIS [None]
  - CARDIAC FAILURE CONGESTIVE [None]
  - CARDIAC MURMUR [None]
  - CHOLELITHIASIS [None]
  - CORONARY ARTERY STENOSIS [None]
  - DEVICE MALFUNCTION [None]
  - DISLOCATION OF JOINT PROSTHESIS [None]
  - DRY EYE [None]
  - FATIGUE [None]
  - HAEMORRHAGIC CYST [None]
  - HEPATIC CYST [None]
  - INSOMNIA [None]
  - LUMBAR SPINAL STENOSIS [None]
  - MEMORY IMPAIRMENT [None]
  - OSTEOARTHRITIS [None]
  - RENAL FAILURE CHRONIC [None]
  - RHEUMATOID ARTHRITIS [None]
  - SCIATICA [None]
  - SPEECH DISORDER [None]
  - SPINAL COMPRESSION FRACTURE [None]
  - SPINAL OSTEOARTHRITIS [None]
  - SPONDYLOLISTHESIS [None]
  - STRESS [None]
